FAERS Safety Report 6201478-3 (Version None)
Quarter: 2009Q2

REPORT INFORMATION
  Report Type: 
  Country: None (occurrence: None)
  Receive Date: 20090526
  Receipt Date: 20090520
  Transmission Date: 20091009
  Serious: Yes (Death, Other)
  Sender: FDA-Public Use
  Company Number: US-ROCHE-633766

PATIENT
  Sex: Female
  Weight: 28.6 kg

DRUGS (1)
  1. BONIVA [Suspect]
     Indication: DRUG USE FOR UNKNOWN INDICATION
     Route: 065

REACTIONS (4)
  - DEATH [None]
  - FALL [None]
  - HIP FRACTURE [None]
  - WEIGHT DECREASED [None]
